FAERS Safety Report 9514737 (Version 1)
Quarter: 2013Q1

REPORT INFORMATION
  Report Type: Spontaneous
  Country: US (occurrence: None)
  Receive Date: 20130305
  Receipt Date: 20130305
  Transmission Date: 20140127
  Serious: Yes (Other)
  Sender: FDA-Public Use
  Company Number: 163-21880-12123124

PATIENT
  Age: 66 Year
  Sex: Male

DRUGS (1)
  1. REVLIMID [Suspect]
     Indication: PLASMA CELL MYELOMA
     Dosage: 25 MG, 14 IN 14 D, PO DEC/2012 -TEMPORARILY
     Route: 048
     Dates: start: 201212

REACTIONS (4)
  - Oedema peripheral [None]
  - Bronchitis [None]
  - Dysphonia [None]
  - Chest pain [None]
